FAERS Safety Report 8489765-X (Version None)
Quarter: 2012Q3

REPORT INFORMATION
  Report Type: 
  Country: None (occurrence: None)
  Receive Date: 20120705
  Receipt Date: 20120622
  Transmission Date: 20120928
  Serious: No
  Sender: FDA-Public Use
  Company Number: US-ASTRAZENECA-2010SE16291

PATIENT
  Age: 55 Year
  Sex: Male

DRUGS (3)
  1. PRILOSEC OTC [Suspect]
     Route: 048
  2. NEXIUM [Suspect]
     Route: 048
  3. ROLAIDS [Concomitant]

REACTIONS (5)
  - FEELING ABNORMAL [None]
  - DRUG INEFFECTIVE [None]
  - ABDOMINAL PAIN [None]
  - DRUG DOSE OMISSION [None]
  - ADVERSE EVENT [None]
